FAERS Safety Report 19171341 (Version 2)
Quarter: 2022Q2

REPORT INFORMATION
  Report Type: Spontaneous
  Country: FR (occurrence: FR)
  Receive Date: 20210423
  Receipt Date: 20220428
  Transmission Date: 20220721
  Serious: Yes (Other)
  Sender: FDA-Public Use
  Company Number: FR-PFIZER INC-2021359397

PATIENT
  Age: 86 Year
  Sex: Female
  Weight: 53 kg

DRUGS (3)
  1. LETROZOLE [Suspect]
     Active Substance: LETROZOLE
     Indication: Product used for unknown indication
     Dosage: 2.5 MILLIGRAM, ONCE A DAY (2.5 MG, DAILY)
     Route: 065
     Dates: start: 20200611
  2. IBRANCE [Suspect]
     Active Substance: PALBOCICLIB
     Indication: Product used for unknown indication
     Dosage: 100 MILLIGRAM CYCLE (100 MG, CYCLIC DAILY FOR 21 DAYS, THEN 7 DAYS BREAK)
     Route: 065
     Dates: start: 20200911, end: 20210325
  3. IBRANCE [Suspect]
     Active Substance: PALBOCICLIB
     Dosage: 75 MILLIGRAM CYCLE (75 MG, CYCLIC DAILY FOR 21 DAYS, THEN 7 DAYS BREAK)
     Route: 065
     Dates: start: 20210326

REACTIONS (1)
  - Thrombocytopenia [Recovered/Resolved]

NARRATIVE: CASE EVENT DATE: 20210217
